FAERS Safety Report 21194516 (Version 2)
Quarter: 2022Q3

REPORT INFORMATION
  Report Type: Spontaneous
  Country: AR (occurrence: AR)
  Receive Date: 20220810
  Receipt Date: 20220829
  Transmission Date: 20221026
  Serious: Yes (Other)
  Sender: FDA-Public Use
  Company Number: AR-PFIZER INC-PV202200037311

PATIENT
  Age: 56 Year
  Sex: Female

DRUGS (2)
  1. XELJANZ [Suspect]
     Active Substance: TOFACITINIB CITRATE
     Indication: Rheumatoid arthritis
     Dosage: 5 MG, 2X/DAY
     Dates: start: 20171115
  2. TOFACITINIB [Suspect]
     Active Substance: TOFACITINIB

REACTIONS (3)
  - Pulmonary oedema [Not Recovered/Not Resolved]
  - Illness [Unknown]
  - Product dispensing issue [Unknown]
